FAERS Safety Report 8587381 (Version 4)
Quarter: 2013Q1

REPORT INFORMATION
  Report Type: Spontaneous
  Country: JP (occurrence: JP)
  Receive Date: 20120531
  Receipt Date: 20130123
  Transmission Date: 20140127
  Serious: Yes (Life-Threatening, Hospitalization)
  Sender: FDA-Public Use
  Company Number: JP-SP-2012-05619

PATIENT
  Age: 85 Year
  Sex: Female
  Weight: 46 kg

DRUGS (8)
  1. IMMUCYST [Suspect]
     Indication: BLADDER CANCER
     Route: 043
     Dates: start: 20120508, end: 20120522
  2. CRAVIT [Concomitant]
     Route: 048
  3. VONFENAC [Concomitant]
     Route: 048
  4. ISCOTIN [Concomitant]
     Route: 048
  5. RIFADIN [Concomitant]
     Route: 048
  6. MICARDIS [Concomitant]
  7. ONEALFA [Concomitant]
     Route: 048
  8. 5-AMINOLEVULINIC ACID [Concomitant]
     Dosage: NOT REPORTED
     Route: 065

REACTIONS (3)
  - Interstitial lung disease [Recovering/Resolving]
  - Pleural effusion [Recovering/Resolving]
  - Hypoxia [Recovering/Resolving]
